FAERS Safety Report 5910828-4 (Version None)
Quarter: 2008Q4

REPORT INFORMATION
  Report Type: 
  Country: None (occurrence: None)
  Receive Date: 20081006
  Receipt Date: 20081006
  Transmission Date: 20090506
  Serious: Yes (Hospitalization)
  Sender: FDA-Public Use
  Company Number: None

PATIENT
  Age: 54 Year
  Sex: Male

DRUGS (5)
  1. SEROQUEL [Suspect]
     Indication: HALLUCINATIONS, MIXED
     Dosage: 200MG  DAILY  PO
     Route: 048
     Dates: start: 20061113, end: 20061120
  2. METHADONE HCL [Concomitant]
  3. LEXAPRO [Concomitant]
  4. HERBAL SUPPLEMENTS [Concomitant]
  5. VITAMINS [Concomitant]

REACTIONS (1)
  - EXTRAPYRAMIDAL DISORDER [None]
